FAERS Safety Report 25135107 (Version 4)
Quarter: 2025Q3

REPORT INFORMATION
  Report Type: Report from Study
  Country: US (occurrence: US)
  Receive Date: 20250328
  Receipt Date: 20250730
  Transmission Date: 20251020
  Serious: Yes (Hospitalization)
  Sender: SPRINGWORKS THERAPEUTIC
  Company Number: US-SPRINGWORKS THERAPEUTICS-SW-002523

PATIENT
  Age: 32 Year
  Sex: Female

DRUGS (1)
  1. NIROGACESTAT [Suspect]
     Active Substance: NIROGACESTAT
     Indication: Desmoid tumour
     Dosage: 100 MILLIGRAM, BID
     Route: 048
     Dates: start: 20250227

REACTIONS (29)
  - Vomiting [Unknown]
  - Dehydration [Unknown]
  - Cardiac disorder [Unknown]
  - Back pain [Unknown]
  - Spinal fracture [Unknown]
  - Abdominal pain [Unknown]
  - Nausea [Unknown]
  - Abdominal pain upper [Unknown]
  - Oropharyngeal pain [Unknown]
  - Dizziness [Unknown]
  - Eye disorder [Unknown]
  - Erythema [Unknown]
  - Dry skin [Unknown]
  - Bradyphrenia [Unknown]
  - Oscillopsia [Unknown]
  - Hepatic enzyme increased [Unknown]
  - White blood cell count decreased [Unknown]
  - Neutrophil count decreased [Unknown]
  - Papule [Unknown]
  - Electrolyte imbalance [Unknown]
  - Laboratory test abnormal [Unknown]
  - Chest pain [Unknown]
  - Cough [Unknown]
  - Fatigue [Unknown]
  - Alopecia [Unknown]
  - Rash [Unknown]
  - Diarrhoea [Unknown]
  - Stomatitis [Unknown]
  - Product dose omission issue [Unknown]

NARRATIVE: CASE EVENT DATE: 20250303
